FAERS Safety Report 8900450 (Version 1)
Quarter: 2012Q4

REPORT INFORMATION
  Report Type: 
  Country: US (occurrence: US)
  Receive Date: 20121108
  Receipt Date: 20121108
  Transmission Date: 20130627
  Serious: No
  Sender: FDA-Public Use
  Company Number: US-AMGEN-USASP2012038404

PATIENT
  Age: 49 Year
  Sex: Female
  Weight: 90.7 kg

DRUGS (6)
  1. ENBREL [Suspect]
     Indication: PRODUCT USED FOR UNKNOWN INDICATION
     Dosage: 50 mg/ml, 2 times/wk
     Route: 058
  2. PAXIL [Concomitant]
     Dosage: 10 mg, UNK
  3. ATENOLOL [Concomitant]
     Dosage: 25 mg, UNK
  4. NEXIUM                             /01479302/ [Concomitant]
     Dosage: 20 mg, UNK
  5. VITAMIN D /00107901/ [Concomitant]
     Dosage: 1000 unit, UNK
  6. CHOLEST-OFF [Concomitant]
     Dosage: UNK

REACTIONS (1)
  - Nasopharyngitis [Recovered/Resolved]
